FAERS Safety Report 9677433 (Version 1)
Quarter: 2013Q4

REPORT INFORMATION
  Report Type: Spontaneous
  Country: US (occurrence: None)
  Receive Date: 20131107
  Receipt Date: 20131107
  Transmission Date: 20140711
  Serious: Yes (Other)
  Sender: FDA-Public Use
  Company Number: None

PATIENT
  Age: 68 Year
  Sex: Female
  Weight: 106.6 kg

DRUGS (1)
  1. BACLOFEN [Suspect]
     Indication: MUSCLE SPASMS
     Dosage: 1 TAB THREE TIMES A DAY TAKEN BY MOUTH
     Route: 048
     Dates: start: 20130315, end: 20130316

REACTIONS (2)
  - Unresponsive to stimuli [None]
  - Somnolence [None]
